FAERS Safety Report 20343410 (Version 1)
Quarter: 2022Q1

REPORT INFORMATION
  Report Type: Spontaneous
  Country: KR (occurrence: KR)
  Receive Date: 20220118
  Receipt Date: 20220118
  Transmission Date: 20220424
  Serious: Yes (Death, Other)
  Sender: FDA-Public Use
  Company Number: KR-AMGEN-KORSP2022004840

PATIENT
  Age: 49 Year
  Sex: Female

DRUGS (1)
  1. BLINATUMOMAB [Suspect]
     Active Substance: BLINATUMOMAB
     Indication: Acute lymphocytic leukaemia
     Route: 065

REACTIONS (5)
  - Cholestasis [Unknown]
  - Sepsis [Fatal]
  - Pneumonia [Fatal]
  - Therapy partial responder [Unknown]
  - Biliary tract disorder [Unknown]
